FAERS Safety Report 23888426 (Version 3)
Quarter: 2025Q1

REPORT INFORMATION
  Report Type: Report from Study
  Country: BR (occurrence: BR)
  Receive Date: 20240523
  Receipt Date: 20250114
  Transmission Date: 20250409
  Serious: Yes (Other)
  Sender: JOHNSON AND JOHNSON
  Company Number: BR-JNJFOC-20240551844

PATIENT
  Age: 57 Year
  Sex: Female
  Weight: 43 kg

DRUGS (2)
  1. INFLIXIMAB [Suspect]
     Active Substance: INFLIXIMAB
     Indication: Crohn^s disease
     Route: 041
     Dates: start: 201606
  2. REMICADE [Suspect]
     Active Substance: INFLIXIMAB
     Indication: Crohn^s disease
     Dosage: DOSE : 3 VIALS
     Route: 041

REACTIONS (5)
  - Sepsis [Unknown]
  - Off label use [Unknown]
  - Furuncle [Unknown]
  - Influenza [Unknown]
  - Dengue fever [Unknown]

NARRATIVE: CASE EVENT DATE: 20240101
